FAERS Safety Report 9861164 (Version 2)
Quarter: 2014Q1

REPORT INFORMATION
  Report Type: Spontaneous
  Country: JP (occurrence: JP)
  Receive Date: 20140202
  Receipt Date: 20140202
  Transmission Date: 20141002
  Serious: No
  Sender: FDA-Public Use
  Company Number: JP-ALLERGAN-1304150US

PATIENT
  Age: 84 Year
  Sex: Female

DRUGS (2)
  1. BOTOX [Suspect]
     Indication: BLEPHAROSPASM
     Dosage: 25 UNITS, SINGLE
     Route: 030
     Dates: start: 20130228, end: 20130228
  2. TEARBALANCE [Concomitant]
     Indication: DRY EYE
     Route: 031
     Dates: start: 20130306

REACTIONS (1)
  - Eyelid ptosis [Not Recovered/Not Resolved]
